FAERS Safety Report 25755096 (Version 1)
Quarter: 2025Q3

REPORT INFORMATION
  Report Type: Spontaneous
  Country: US (occurrence: US)
  Receive Date: 20250903
  Receipt Date: 20250903
  Transmission Date: 20251021
  Serious: Yes (Life-Threatening, Hospitalization, Other)
  Sender: GLAND PHARMA LTD
  Company Number: US-GLANDPHARMA-US-2025GLNLIT01707

PATIENT
  Age: 76 Year
  Sex: Female

DRUGS (2)
  1. AMIODARONE HYDROCHLORIDE [Suspect]
     Active Substance: AMIODARONE HYDROCHLORIDE
     Indication: Atrial fibrillation
     Route: 048
  2. AMIODARONE HYDROCHLORIDE [Suspect]
     Active Substance: AMIODARONE HYDROCHLORIDE
     Route: 042

REACTIONS (3)
  - Acute hepatic failure [Recovered/Resolved]
  - Shock [Recovered/Resolved]
  - Product use in unapproved indication [Unknown]
